FAERS Safety Report 5620618-8 (Version None)
Quarter: 2008Q1

REPORT INFORMATION
  Report Type: 
  Country: None (occurrence: None)
  Receive Date: 20080208
  Receipt Date: 20080130
  Transmission Date: 20080703
  Serious: Yes (Other)
  Sender: FDA-Public Use
  Company Number: US-BAYER-200713305BCC

PATIENT
  Age: 50 Year
  Sex: Female
  Weight: 91 kg

DRUGS (8)
  1. ALKA SELTZER PLUS EFFERVESCENT COLD CHERRY BURST [Suspect]
     Indication: HYPERSENSITIVITY
     Dosage: TOTAL DAILY DOSE: 250 MG  UNIT DOSE: 250 MG
     Route: 048
  2. ALKA SELTZER PLUS EFFERVESCENT COLD CHERRY BURST [Suspect]
     Dosage: TOTAL DAILY DOSE: 250 MG  UNIT DOSE: 250 MG
     Route: 048
     Dates: start: 20071006, end: 20071009
  3. DIABETES MEDICATION [Concomitant]
  4. PRENATAL VITAMINS [Concomitant]
  5. WALGREENS 81 MG ASPIRIN [Concomitant]
  6. MICHAELS BLOOD PRESSURE FACTOR [Concomitant]
  7. CHOLEST-OFF [Concomitant]
  8. CRANACTIN [Concomitant]

REACTIONS (5)
  - COORDINATION ABNORMAL [None]
  - DYSSTASIA [None]
  - HEADACHE [None]
  - MEMORY IMPAIRMENT [None]
  - TRANSIENT ISCHAEMIC ATTACK [None]
